FAERS Safety Report 19322449 (Version 5)
Quarter: 2021Q3

REPORT INFORMATION
  Report Type: Other
  Country: IT (occurrence: IT)
  Receive Date: 20210528
  Receipt Date: 20210715
  Transmission Date: 20211014
  Serious: Yes (Other)
  Sender: FDA-Public Use
  Company Number: IT-ROCHE-2696284

PATIENT
  Age: 71 Year
  Sex: Female

DRUGS (10)
  1. CARDIOASPIRIN [Concomitant]
     Active Substance: ASPIRIN
     Dates: start: 20190416
  2. RAMIPRIL. [Concomitant]
     Active Substance: RAMIPRIL
     Dates: start: 20190416
  3. ACICLOVIR [Concomitant]
     Active Substance: ACYCLOVIR
     Dates: start: 20190509
  4. OBINUTUZUMAB. [Suspect]
     Active Substance: OBINUTUZUMAB
     Route: 042
     Dates: start: 20190612
  5. SULFAMETHOXAZOLE/TRIMETHOPRIM [Concomitant]
     Active Substance: SULFAMETHOXAZOLE\TRIMETHOPRIM
     Dates: start: 20190509
  6. LEVOTHYROXINE. [Concomitant]
     Active Substance: LEVOTHYROXINE
     Dates: start: 20190416
  7. LAMIVUDINE. [Concomitant]
     Active Substance: LAMIVUDINE
     Dates: start: 20190416
  8. LANSOPRAZOLE. [Concomitant]
     Active Substance: LANSOPRAZOLE
     Dates: start: 20190509
  9. OBINUTUZUMAB. [Suspect]
     Active Substance: OBINUTUZUMAB
     Indication: FOLLICULAR LYMPHOMA
     Dosage: FIRST CYCLE: DOSE SPLITTED:100 MG ON 02/MAY/2019, 900 MG ON 03/MAY/2019; SECOND CYCLE: SPLITTED DOSE
     Route: 042
     Dates: start: 20190502
  10. FUROSEMIDE. [Concomitant]
     Active Substance: FUROSEMIDE
     Dates: start: 20190416

REACTIONS (3)
  - Panniculitis [Recovered/Resolved]
  - Neutropenia [Recovered/Resolved]
  - Thrombocytopenia [Recovered/Resolved]

NARRATIVE: CASE EVENT DATE: 20200318
